FAERS Safety Report 20028091 (Version 2)
Quarter: 2022Q1

REPORT INFORMATION
  Report Type: Spontaneous
  Country: DE (occurrence: DE)
  Receive Date: 20211103
  Receipt Date: 20220105
  Transmission Date: 20220423
  Serious: Yes (Life-Threatening, Hospitalization, Other)
  Sender: FDA-Public Use
  Company Number: DE-SANOFI-00795612

PATIENT
  Age: 51 Year
  Sex: Female

DRUGS (5)
  1. DUPIXENT [Suspect]
     Active Substance: DUPILUMAB
     Dosage: 300 MG, QOW
     Route: 058
     Dates: start: 20201108, end: 20210809
  2. MOMETASONE FUROATE [Concomitant]
     Active Substance: MOMETASONE FUROATE
     Indication: Inflammation
  3. ALBUTEROL SULFATE [Concomitant]
     Active Substance: ALBUTEROL SULFATE
  4. PREDNISOLONE [Concomitant]
     Active Substance: PREDNISOLONE
  5. BUDESONIDE [Concomitant]
     Active Substance: BUDESONIDE

REACTIONS (14)
  - Cerebrovascular accident [Unknown]
  - Eosinophilic granulomatosis with polyangiitis [Unknown]
  - Neurological symptom [Unknown]
  - Fatigue [Unknown]
  - Platelet count abnormal [Unknown]
  - Dysarthria [Unknown]
  - Eosinophil count increased [Unknown]
  - Arthralgia [Unknown]
  - Sinus operation [Unknown]
  - Pain in extremity [Unknown]
  - Night sweats [Unknown]
  - Dyspnoea [Unknown]
  - Cough [Unknown]
  - Cerebrovascular accident [Unknown]

NARRATIVE: CASE EVENT DATE: 20210809
